FAERS Safety Report 16801868 (Version 2)
Quarter: 2019Q3

REPORT INFORMATION
  Report Type: Report from Study
  Country: AR (occurrence: AR)
  Receive Date: 20190912
  Receipt Date: 20190927
  Transmission Date: 20191005
  Serious: Yes (Other)
  Sender: FDA-Public Use
  Company Number: PHHY2019AR210887

PATIENT
  Age: 73 Year
  Sex: Male

DRUGS (7)
  1. DIOVAN [Suspect]
     Active Substance: VALSARTAN
     Indication: HYPERTENSION
     Dosage: 2 DF, QD
     Route: 065
     Dates: start: 2017, end: 20190905
  2. OXA 75 RAPILENT [Concomitant]
     Indication: BONE PAIN
     Route: 065
  3. VIGADEXA [Suspect]
     Active Substance: DEXAMETHASONE SODIUM PHOSPHATE\MOXIFLOXACIN HYDROCHLORIDE
     Indication: PRODUCT USED FOR UNKNOWN INDICATION
     Route: 047
  4. DIOVAN D [Suspect]
     Active Substance: HYDROCHLOROTHIAZIDE\VALSARTAN
     Indication: HYPERTENSION
     Dosage: UNK (HYDROCHLORTHIAZIDE 25, VALSARTAN 160)
     Route: 065
     Dates: end: 20160325
  5. LUCENTIS [Suspect]
     Active Substance: RANIBIZUMAB
     Indication: VITREOUS DETACHMENT
     Dosage: UNK, QMO
     Route: 065
     Dates: start: 201809
  6. DIOVAN D [Suspect]
     Active Substance: HYDROCHLOROTHIAZIDE\VALSARTAN
     Dosage: 0.5 DF, QD (IN THE NIGHT) (HYDROCHLORTHIAZIDE 25, VALSARTAN 160)
     Route: 065
     Dates: start: 20190906
  7. INSULIN [Concomitant]
     Active Substance: INSULIN NOS
     Indication: PRODUCT USED FOR UNKNOWN INDICATION
     Dosage: 1 DF, QD
     Route: 065

REACTIONS (9)
  - Vitreous detachment [Recovering/Resolving]
  - Blood pressure increased [Recovered/Resolved]
  - Drug ineffective [Unknown]
  - Gait disturbance [Recovered/Resolved]
  - Malaise [Recovered/Resolved]
  - Rebound effect [Unknown]
  - Blindness unilateral [Recovering/Resolving]
  - Retinal injury [Recovering/Resolving]
  - Localised infection [Recovered/Resolved]

NARRATIVE: CASE EVENT DATE: 20190610
